FAERS Safety Report 4289479-6 (Version None)
Quarter: 2004Q1

REPORT INFORMATION
  Report Type: 
  Country: None (occurrence: None)
  Receive Date: 20040210
  Receipt Date: 20031106
  Transmission Date: 20041129
  Serious: Yes (Hospitalization)
  Sender: FDA-Public Use
  Company Number: STA-AE-03-035

PATIENT
  Age: 58 Year
  Sex: Female

DRUGS (5)
  1. ATENOLOL [Suspect]
     Dosage: 100MG, ORAL
     Route: 048
  2. CLARITHROMYCIN [Suspect]
     Dosage: 1000MG, ORAL
     Route: 048
  3. CHLOROQUINE [Concomitant]
  4. ACETYLCYSTEINE [Concomitant]
  5. ISRADIPINE [Concomitant]

REACTIONS (19)
  - ASTHENIA [None]
  - ATRIAL FLUTTER [None]
  - BUNDLE BRANCH BLOCK RIGHT [None]
  - CARDIOMEGALY [None]
  - CONFUSIONAL STATE [None]
  - DIARRHOEA [None]
  - DYSARTHRIA [None]
  - FEELING ABNORMAL [None]
  - HAEMOGLOBIN ABNORMAL [None]
  - HEPATIC ENCEPHALOPATHY [None]
  - HEPATIC FAILURE [None]
  - HEPATIC NECROSIS [None]
  - HEPATOMEGALY [None]
  - MALAISE [None]
  - METABOLIC ACIDOSIS [None]
  - NAUSEA [None]
  - OEDEMA PERIPHERAL [None]
  - PLATELET COUNT DECREASED [None]
  - PULMONARY EMBOLISM [None]
